FAERS Safety Report 25967812 (Version 1)
Quarter: 2025Q4

REPORT INFORMATION
  Report Type: Report from Study
  Country: CO (occurrence: CO)
  Receive Date: 20251028
  Receipt Date: 20251028
  Transmission Date: 20260118
  Serious: Yes (Hospitalization)
  Sender: ABBVIE
  Company Number: CO-ABBVIE-6519667

PATIENT
  Age: 52 Year
  Sex: Female
  Weight: 49 kg

DRUGS (1)
  1. RINVOQ [Suspect]
     Active Substance: UPADACITINIB
     Indication: Rheumatoid arthritis
     Dosage: RINVOQ BOTTLE 15MG
     Route: 048
     Dates: start: 20240319, end: 20250912

REACTIONS (2)
  - Bartholin^s abscess [Recovering/Resolving]
  - Bartholinitis [Recovering/Resolving]

NARRATIVE: CASE EVENT DATE: 20250901
